FAERS Safety Report 13705851 (Version 1)
Quarter: 2017Q2

REPORT INFORMATION
  Report Type: Spontaneous
  Country: CH (occurrence: CH)
  Receive Date: 20170630
  Receipt Date: 20170630
  Transmission Date: 20170830
  Serious: Yes (Other)
  Sender: FDA-Public Use
  Company Number: CH-BAYER-2017-122821

PATIENT
  Age: 41 Year
  Sex: Female

DRUGS (1)
  1. MIRENA [Suspect]
     Active Substance: LEVONORGESTREL
     Indication: CONTRACEPTION
     Dosage: 20 MCG/24HR, CONT
     Route: 015
     Dates: start: 20160928, end: 20170213

REACTIONS (7)
  - Alopecia universalis [Recovered/Resolved]
  - Tinnitus [Not Recovered/Not Resolved]
  - Joint stiffness [Recovered/Resolved with Sequelae]
  - Genital haemorrhage [Recovered/Resolved]
  - Headache [Recovered/Resolved with Sequelae]
  - Device dislocation [Recovered/Resolved]
  - Anxiety [Recovered/Resolved]

NARRATIVE: CASE EVENT DATE: 201609
